FAERS Safety Report 12999021 (Version 1)
Quarter: 2016Q4

REPORT INFORMATION
  Report Type: Not Available
  Country: FR (occurrence: FR)
  Receive Date: 20161205
  Receipt Date: 20161205
  Transmission Date: 20170207
  Serious: Yes (Death)
  Sender: FDA-Public Use
  Company Number: FR-MUNDIPHARMA DS AND PHARMACOVIGILANCE-GBR-2016-0042044

PATIENT
  Age: 53 Year
  Sex: Female

DRUGS (8)
  1. AMLODIPINE [Suspect]
     Active Substance: AMLODIPINE BESYLATE
     Indication: PRODUCT USED FOR UNKNOWN INDICATION
     Dosage: UNK
     Route: 065
  2. OXYCONTIN [Suspect]
     Active Substance: OXYCODONE HYDROCHLORIDE
     Indication: PRODUCT USED FOR UNKNOWN INDICATION
     Dosage: 120 MG, BID
     Route: 065
     Dates: start: 2013
  3. OXYNORM [Suspect]
     Active Substance: OXYCODONE HYDROCHLORIDE
     Indication: PRODUCT USED FOR UNKNOWN INDICATION
     Dosage: 10 MG, Q4H
     Route: 065
     Dates: start: 2013
  4. DIPHENHYDRAMINE. [Concomitant]
     Active Substance: DIPHENHYDRAMINE
  5. CODEINE [Concomitant]
     Active Substance: CODEINE
  6. OXAZEPAM. [Concomitant]
     Active Substance: OXAZEPAM
  7. NORDIAZEPAM [Concomitant]
     Active Substance: NORDAZEPAM
  8. LORMETAZEPAM [Concomitant]
     Active Substance: LORMETAZEPAM

REACTIONS (2)
  - Overdose [Fatal]
  - Asphyxia [Fatal]

NARRATIVE: CASE EVENT DATE: 2013
